FAERS Safety Report 21842354 (Version 1)
Quarter: 2023Q1

REPORT INFORMATION
  Report Type: Spontaneous
  Country: CN (occurrence: CN)
  Receive Date: 20230110
  Receipt Date: 20230110
  Transmission Date: 20230417
  Serious: Yes (Hospitalization)
  Sender: FDA-Public Use
  Company Number: None

PATIENT
  Age: 68 Year
  Sex: Male
  Weight: 60 kg

DRUGS (2)
  1. CYCLOPHOSPHAMIDE [Suspect]
     Active Substance: CYCLOPHOSPHAMIDE
     Indication: Follicular lymphoma
     Dosage: 1.2 G, QD DILUTED WITH SODIUM CHLORIDE
     Route: 041
     Dates: start: 20221209, end: 20221209
  2. SODIUM CHLORIDE [Suspect]
     Active Substance: SODIUM CHLORIDE
     Indication: Medication dilution
     Dosage: QD, USED TO DILUTE 1.2 G OF CYCLOPHOSPHAMIDE
     Route: 041
     Dates: start: 20221209, end: 20221209

REACTIONS (3)
  - Vomiting [Recovering/Resolving]
  - Condition aggravated [Unknown]
  - Nausea [Recovering/Resolving]

NARRATIVE: CASE EVENT DATE: 20221209
